FAERS Safety Report 18257315 (Version 7)
Quarter: 2020Q4

REPORT INFORMATION
  Report Type: Report from Study
  Country: BR (occurrence: BR)
  Receive Date: 20200911
  Receipt Date: 20201228
  Transmission Date: 20210113
  Serious: Yes (Death, Life-Threatening, Hospitalization)
  Sender: FDA-Public Use
  Company Number: BR-ROCHE-2657395

PATIENT
  Age: 55 Year
  Sex: Male
  Weight: 83 kg

DRUGS (147)
  1. METOCLOPRAMIDE. [Concomitant]
     Active Substance: METOCLOPRAMIDE
     Dates: start: 20200905, end: 20200915
  2. ENOXAPARIN [Concomitant]
     Active Substance: ENOXAPARIN
     Dates: start: 20200901, end: 20200915
  3. ENOXAPARIN [Concomitant]
     Active Substance: ENOXAPARIN
     Dates: start: 20200826, end: 20200827
  4. FUROSEMIDE. [Concomitant]
     Active Substance: FUROSEMIDE
     Dates: start: 20200804, end: 20200804
  5. OXYGEN. [Concomitant]
     Active Substance: OXYGEN
     Route: 007
     Dates: start: 20200823
  6. OXYGEN. [Concomitant]
     Active Substance: OXYGEN
     Dosage: TRANSTRACHEAL
     Dates: start: 20200822
  7. OXYGEN. [Concomitant]
     Active Substance: OXYGEN
     Route: 007
     Dates: start: 20200812
  8. OXYGEN. [Concomitant]
     Active Substance: OXYGEN
     Dosage: TRANSTRACHEAL
     Dates: start: 20200830
  9. OXYGEN. [Concomitant]
     Active Substance: OXYGEN
     Route: 007
     Dates: start: 20200729
  10. OXYGEN. [Concomitant]
     Active Substance: OXYGEN
     Dosage: 7 L/MIN
     Route: 055
     Dates: start: 20200808
  11. CEFTRIAXONE. [Concomitant]
     Active Substance: CEFTRIAXONE
     Dates: start: 20200720, end: 20200725
  12. DIPYRONE [Concomitant]
     Active Substance: DIPYRONE
     Indication: COVID-19
     Dates: start: 20200816, end: 20200909
  13. MORPHINE [Concomitant]
     Active Substance: MORPHINE
     Indication: COVID-19
     Dates: start: 20200816, end: 20200816
  14. NORADRENALINE [Concomitant]
     Active Substance: NOREPINEPHRINE
     Indication: PNEUMONIA KLEBSIELLA
     Dates: start: 20200903, end: 20200913
  15. OXYGEN. [Concomitant]
     Active Substance: OXYGEN
     Dosage: TRANSTRACHEAL
     Dates: start: 20200830
  16. OXYGEN. [Concomitant]
     Active Substance: OXYGEN
     Route: 007
     Dates: start: 20200830
  17. OXYGEN. [Concomitant]
     Active Substance: OXYGEN
     Dosage: TRANSTRACHEAL
     Dates: start: 20200827
  18. OXYGEN. [Concomitant]
     Active Substance: OXYGEN
     Route: 007
     Dates: start: 20200824
  19. OXYGEN. [Concomitant]
     Active Substance: OXYGEN
     Route: 007
     Dates: start: 20200814
  20. OXYGEN. [Concomitant]
     Active Substance: OXYGEN
     Route: 007
     Dates: start: 20200826
  21. OXYGEN. [Concomitant]
     Active Substance: OXYGEN
     Dosage: TRANSTRACHEAL
     Dates: start: 20200904
  22. OXYGEN. [Concomitant]
     Active Substance: OXYGEN
     Route: 007
     Dates: start: 20200815
  23. OXYGEN. [Concomitant]
     Active Substance: OXYGEN
     Dosage: TRANSTRACHEAL
     Dates: start: 20200828
  24. OXYGEN. [Concomitant]
     Active Substance: OXYGEN
     Route: 007
     Dates: start: 20200814
  25. OXYGEN. [Concomitant]
     Active Substance: OXYGEN
     Dosage: TRANSTRACHEAL
     Dates: start: 20200907
  26. OXYGEN. [Concomitant]
     Active Substance: OXYGEN
     Dosage: TRANSTRACHEAL
     Dates: start: 20200821
  27. OXYGEN. [Concomitant]
     Active Substance: OXYGEN
     Route: 007
     Dates: start: 20200820
  28. OXYGEN. [Concomitant]
     Active Substance: OXYGEN
     Route: 007
     Dates: start: 20200731
  29. OXYGEN. [Concomitant]
     Active Substance: OXYGEN
     Route: 007
     Dates: start: 20200730
  30. OXYGEN. [Concomitant]
     Active Substance: OXYGEN
     Dosage: 08 L/MIN
     Route: 055
     Dates: start: 20200723
  31. METOCLOPRAMIDE. [Concomitant]
     Active Substance: METOCLOPRAMIDE
     Dates: start: 20200719, end: 20200826
  32. ENOXAPARIN [Concomitant]
     Active Substance: ENOXAPARIN
     Dates: start: 20200725, end: 20200811
  33. NORADRENALINE [Concomitant]
     Active Substance: NOREPINEPHRINE
     Indication: ACUTE KIDNEY INJURY
     Dates: start: 20200809, end: 20200827
  34. FUROSEMIDE. [Concomitant]
     Active Substance: FUROSEMIDE
     Indication: COVID-19
     Dates: start: 20200816, end: 20200819
  35. FUROSEMIDE. [Concomitant]
     Active Substance: FUROSEMIDE
     Dates: start: 20200722, end: 20200722
  36. FUROSEMIDE. [Concomitant]
     Active Substance: FUROSEMIDE
     Dates: start: 20200729, end: 20200729
  37. OXYGEN. [Concomitant]
     Active Substance: OXYGEN
     Dosage: TRANSTRACHEAL
     Dates: start: 20200909
  38. OXYGEN. [Concomitant]
     Active Substance: OXYGEN
     Route: 007
     Dates: start: 20200728
  39. OXYGEN. [Concomitant]
     Active Substance: OXYGEN
     Route: 007
     Dates: start: 20200813
  40. OXYGEN. [Concomitant]
     Active Substance: OXYGEN
     Dosage: 5 L/MIN
     Route: 055
     Dates: start: 20200807
  41. OXYGEN. [Concomitant]
     Active Substance: OXYGEN
     Route: 007
     Dates: start: 20200818
  42. OXYGEN. [Concomitant]
     Active Substance: OXYGEN
     Dosage: TRANSTRACHEAL
     Dates: start: 20200822
  43. OXYGEN. [Concomitant]
     Active Substance: OXYGEN
     Dosage: TRANSTRACHEAL
     Dates: start: 20200912
  44. OXYGEN. [Concomitant]
     Active Substance: OXYGEN
     Route: 007
     Dates: start: 20200802
  45. OXYGEN. [Concomitant]
     Active Substance: OXYGEN
     Route: 007
     Dates: start: 20200730
  46. OXYGEN. [Concomitant]
     Active Substance: OXYGEN
     Dosage: TRANSTRACHEAL
     Dates: start: 20200911
  47. OXYGEN. [Concomitant]
     Active Substance: OXYGEN
     Route: 007
     Dates: start: 20200801
  48. OXYGEN. [Concomitant]
     Active Substance: OXYGEN
     Dosage: TRANSTRACHEAL
     Dates: start: 20200906
  49. OXYGEN. [Concomitant]
     Active Substance: OXYGEN
     Dosage: TRANSTRACHEAL
     Dates: start: 20200901
  50. OXYGEN. [Concomitant]
     Active Substance: OXYGEN
     Route: 007
     Dates: start: 20200727
  51. OXYGEN. [Concomitant]
     Active Substance: OXYGEN
     Route: 007
     Dates: start: 20200811
  52. OXYGEN. [Concomitant]
     Active Substance: OXYGEN
     Route: 007
     Dates: start: 20200803
  53. OSELTAMIVIR [Concomitant]
     Active Substance: OSELTAMIVIR
     Indication: COVID-19
     Dates: start: 20200720, end: 20200720
  54. REMDESIVIR. [Suspect]
     Active Substance: REMDESIVIR
     Indication: COVID-19 PNEUMONIA
     Dosage: THE MOST RECENT DOSE OF REMDESIVIR (100 ML) PRIOR TO AE AND SAE ONSET WAS ON 31/JUL/2020 AT 16:36?TH
     Route: 042
     Dates: start: 20200722
  55. PRECEDEX [Concomitant]
     Active Substance: DEXMEDETOMIDINE HYDROCHLORIDE
     Dates: start: 20200814, end: 20200818
  56. ENOXAPARIN [Concomitant]
     Active Substance: ENOXAPARIN
     Dates: start: 20200829, end: 20200831
  57. ENOXAPARIN [Concomitant]
     Active Substance: ENOXAPARIN
     Dates: start: 20200719, end: 20200719
  58. OXYGEN. [Concomitant]
     Active Substance: OXYGEN
     Dosage: 12 L/MIN
     Route: 055
     Dates: start: 20200724
  59. OXYGEN. [Concomitant]
     Active Substance: OXYGEN
     Route: 007
     Dates: start: 20200821
  60. OXYGEN. [Concomitant]
     Active Substance: OXYGEN
     Dosage: 11 L/MIN
     Route: 055
     Dates: start: 20200722
  61. OXYGEN. [Concomitant]
     Active Substance: OXYGEN
     Dosage: TRANSTRACHEAL
     Dates: start: 20200905
  62. OXYGEN. [Concomitant]
     Active Substance: OXYGEN
     Dosage: TRANSTRACHEAL
     Dates: start: 20200908
  63. OXYGEN. [Concomitant]
     Active Substance: OXYGEN
     Dosage: TRANSTRACHEAL
     Dates: start: 20200829
  64. OXYGEN. [Concomitant]
     Active Substance: OXYGEN
     Route: 007
     Dates: start: 20200823
  65. OXYGEN. [Concomitant]
     Active Substance: OXYGEN
     Route: 007
     Dates: start: 20200805
  66. AZITHROMYCIN ANHYDROUS. [Concomitant]
     Active Substance: AZITHROMYCIN ANHYDROUS
     Dates: start: 20200720, end: 20200723
  67. DEXAMETHASONE. [Concomitant]
     Active Substance: DEXAMETHASONE
     Indication: COVID-19
     Dates: start: 20200719, end: 20200726
  68. ZOLPIDEM [Concomitant]
     Active Substance: ZOLPIDEM TARTRATE
     Indication: INSOMNIA
     Dates: start: 20200723, end: 20200725
  69. OMEPRAZOLE. [Concomitant]
     Active Substance: OMEPRAZOLE
     Dates: start: 20200720, end: 20200915
  70. ENOXAPARIN [Concomitant]
     Active Substance: ENOXAPARIN
     Dates: start: 20200722, end: 20200724
  71. MORPHINE [Concomitant]
     Active Substance: MORPHINE
     Dates: start: 20200904, end: 20200904
  72. OXYGEN. [Concomitant]
     Active Substance: OXYGEN
     Dosage: 15 L/MIN
     Route: 055
     Dates: start: 20200725
  73. OXYGEN. [Concomitant]
     Active Substance: OXYGEN
     Route: 007
     Dates: start: 20200817
  74. OXYGEN. [Concomitant]
     Active Substance: OXYGEN
     Dosage: TRANSTRACHEAL
     Dates: start: 20200907
  75. OXYGEN. [Concomitant]
     Active Substance: OXYGEN
     Route: 007
     Dates: start: 20200812
  76. OXYGEN. [Concomitant]
     Active Substance: OXYGEN
     Route: 007
     Dates: start: 20200805
  77. OXYGEN. [Concomitant]
     Active Substance: OXYGEN
     Dosage: 5 L/MIN
     Route: 055
     Dates: start: 20200807
  78. OXYGEN. [Concomitant]
     Active Substance: OXYGEN
     Route: 007
     Dates: start: 20200813
  79. OXYGEN. [Concomitant]
     Active Substance: OXYGEN
     Dosage: 5 L/MIN
     Route: 055
     Dates: start: 20200806
  80. OXYGEN. [Concomitant]
     Active Substance: OXYGEN
     Route: 007
     Dates: start: 20200809
  81. OXYGEN. [Concomitant]
     Active Substance: OXYGEN
     Route: 007
     Dates: start: 20200728
  82. OXYGEN. [Concomitant]
     Active Substance: OXYGEN
     Dosage: 11 L/MIN
     Route: 055
     Dates: start: 20200722
  83. TOCILIZUMAB. [Suspect]
     Active Substance: TOCILIZUMAB
     Indication: COVID-19 PNEUMONIA
     Dosage: THE MOST RECENT DOSE OF TOCILIZUMAB (100 ML) PRIOR TO ONSET OF AE AND SAE WAS ON 22/JUL/2020 AT 20:1
     Route: 042
     Dates: start: 20200722
  84. PRECEDEX [Concomitant]
     Active Substance: DEXMEDETOMIDINE HYDROCHLORIDE
     Indication: ANXIETY
     Dates: start: 20200805, end: 20200809
  85. PRECEDEX [Concomitant]
     Active Substance: DEXMEDETOMIDINE HYDROCHLORIDE
     Dates: start: 20200824, end: 20200905
  86. PRECEDEX [Concomitant]
     Active Substance: DEXMEDETOMIDINE HYDROCHLORIDE
     Dates: start: 20200721, end: 20200726
  87. OXYGEN. [Concomitant]
     Active Substance: OXYGEN
     Dosage: TRANSTRACHEAL
     Dates: start: 20200908
  88. OXYGEN. [Concomitant]
     Active Substance: OXYGEN
     Route: 007
     Dates: start: 20200804
  89. OXYGEN. [Concomitant]
     Active Substance: OXYGEN
     Dosage: TRANSTRACHEAL
     Dates: start: 20200903
  90. OXYGEN. [Concomitant]
     Active Substance: OXYGEN
     Dosage: 9 L/MIN
     Route: 055
     Dates: start: 20200722
  91. OXYGEN. [Concomitant]
     Active Substance: OXYGEN
     Route: 007
     Dates: start: 20200810
  92. OXYGEN. [Concomitant]
     Active Substance: OXYGEN
     Route: 007
     Dates: start: 20200816
  93. OXYGEN. [Concomitant]
     Active Substance: OXYGEN
     Dosage: 5 L/MIN
     Route: 055
     Dates: start: 20200808
  94. OXYGEN. [Concomitant]
     Active Substance: OXYGEN
     Dosage: 10 L/MIN
     Route: 055
     Dates: start: 20200723
  95. OXYGEN. [Concomitant]
     Active Substance: OXYGEN
     Dosage: TRANSTRACHEAL
     Dates: start: 20200913
  96. OXYGEN. [Concomitant]
     Active Substance: OXYGEN
     Route: 007
     Dates: start: 20200825
  97. OXYGEN. [Concomitant]
     Active Substance: OXYGEN
     Route: 007
     Dates: start: 20200820
  98. OXYGEN. [Concomitant]
     Active Substance: OXYGEN
     Route: 007
     Dates: start: 20200731
  99. OXYGEN. [Concomitant]
     Active Substance: OXYGEN
     Route: 007
     Dates: start: 20200824
  100. OXYGEN. [Concomitant]
     Active Substance: OXYGEN
     Dosage: TRANSTRACHEAL
     Dates: start: 20200912
  101. OXYGEN. [Concomitant]
     Active Substance: OXYGEN
     Dosage: TRANSTRACHEAL
     Dates: start: 20200826
  102. OXYGEN. [Concomitant]
     Active Substance: OXYGEN
     Dosage: 15 L/MIN
     Route: 055
     Dates: start: 20200725
  103. OXYGEN. [Concomitant]
     Active Substance: OXYGEN
     Dosage: TRANSTRACHEAL
     Dates: start: 20200827
  104. OXYGEN. [Concomitant]
     Active Substance: OXYGEN
     Route: 007
     Dates: start: 20200804
  105. OXYGEN. [Concomitant]
     Active Substance: OXYGEN
     Dosage: TRANSTRACHEAL
     Dates: start: 20200910
  106. OXYGEN. [Concomitant]
     Active Substance: OXYGEN
     Route: 007
     Dates: start: 20200802
  107. OXYGEN. [Concomitant]
     Active Substance: OXYGEN
     Route: 007
     Dates: start: 20200810
  108. OXYGEN. [Concomitant]
     Active Substance: OXYGEN
     Dosage: TRANSTRACHEAL
     Dates: start: 20200903
  109. OXYGEN. [Concomitant]
     Active Substance: OXYGEN
     Dosage: TRANSTRACHEAL
     Dates: start: 20200905
  110. OXYGEN. [Concomitant]
     Active Substance: OXYGEN
     Dosage: TRANSTRACHEAL
     Dates: start: 20200913
  111. OSELTAMIVIR [Concomitant]
     Active Substance: OSELTAMIVIR
     Dates: start: 20200723, end: 20200723
  112. NORADRENALINE [Concomitant]
     Active Substance: NOREPINEPHRINE
     Dates: start: 20200726, end: 20200803
  113. OXYGEN. [Concomitant]
     Active Substance: OXYGEN
     Dosage: TRANSTRACHEAL
     Dates: start: 20200914
  114. OXYGEN. [Concomitant]
     Active Substance: OXYGEN
     Route: 007
     Dates: start: 20200729
  115. OXYGEN. [Concomitant]
     Active Substance: OXYGEN
     Dosage: TRANSTRACHEAL
     Dates: start: 20200829
  116. OXYGEN. [Concomitant]
     Active Substance: OXYGEN
     Dosage: TRANSTRACHEAL
     Dates: start: 20200901
  117. OXYGEN. [Concomitant]
     Active Substance: OXYGEN
     Dosage: TRANSTRACHEAL
     Dates: start: 20200906
  118. OXYGEN. [Concomitant]
     Active Substance: OXYGEN
     Dosage: TRANSTRACHEAL
     Dates: start: 20200902
  119. OXYGEN. [Concomitant]
     Active Substance: OXYGEN
     Route: 007
     Dates: start: 20200803
  120. OXYGEN. [Concomitant]
     Active Substance: OXYGEN
     Route: 007
     Dates: start: 20200806
  121. OXYGEN. [Concomitant]
     Active Substance: OXYGEN
     Route: 007
     Dates: start: 20200811
  122. OXYGEN. [Concomitant]
     Active Substance: OXYGEN
     Dosage: 15 L/MIN
     Route: 055
     Dates: start: 20200726
  123. OXYGEN. [Concomitant]
     Active Substance: OXYGEN
     Route: 007
     Dates: start: 20200817
  124. OXYGEN. [Concomitant]
     Active Substance: OXYGEN
     Route: 007
     Dates: start: 20200815
  125. OXYGEN. [Concomitant]
     Active Substance: OXYGEN
     Dosage: TRANSTRACHEAL
     Dates: start: 20200909
  126. OXYGEN. [Concomitant]
     Active Substance: OXYGEN
     Route: 007
     Dates: start: 20200819
  127. OXYGEN. [Concomitant]
     Active Substance: OXYGEN
     Dosage: 12 L/MIN
     Route: 055
     Dates: start: 20200724
  128. OXYGEN. [Concomitant]
     Active Substance: OXYGEN
     Route: 007
     Dates: start: 20200818
  129. DIPYRONE [Concomitant]
     Active Substance: DIPYRONE
     Dates: start: 20200722, end: 20200802
  130. MORPHINE [Concomitant]
     Active Substance: MORPHINE
     Dates: start: 20200828, end: 20200828
  131. OXYGEN. [Concomitant]
     Active Substance: OXYGEN
     Route: 007
     Dates: start: 20200819
  132. OXYGEN. [Concomitant]
     Active Substance: OXYGEN
     Route: 007
     Dates: start: 20200801
  133. OXYGEN. [Concomitant]
     Active Substance: OXYGEN
     Route: 007
     Dates: start: 20200727
  134. OXYGEN. [Concomitant]
     Active Substance: OXYGEN
     Dosage: TRANSTRACHEAL
     Dates: start: 20200915
  135. OXYGEN. [Concomitant]
     Active Substance: OXYGEN
     Dosage: TRANSTRACHEAL
     Dates: start: 20200831
  136. OXYGEN. [Concomitant]
     Active Substance: OXYGEN
     Dosage: TRANSTRACHEAL
     Dates: start: 20200828
  137. OXYGEN. [Concomitant]
     Active Substance: OXYGEN
     Dosage: TRANSTRACHEAL
     Dates: start: 20200910
  138. OXYGEN. [Concomitant]
     Active Substance: OXYGEN
     Dosage: 7 L/MIN
     Route: 055
     Dates: start: 20200809
  139. OXYGEN. [Concomitant]
     Active Substance: OXYGEN
     Dosage: TRANSTRACHEAL
     Dates: start: 20200911
  140. OXYGEN. [Concomitant]
     Active Substance: OXYGEN
     Dosage: TRANSTRACHEAL
     Dates: start: 20200904
  141. OXYGEN. [Concomitant]
     Active Substance: OXYGEN
     Dosage: 11 L/MIN
     Route: 055
     Dates: start: 20200722
  142. OXYGEN. [Concomitant]
     Active Substance: OXYGEN
     Route: 007
     Dates: start: 20200816
  143. OXYGEN. [Concomitant]
     Active Substance: OXYGEN
     Dosage: TRANSTRACHEAL
     Dates: start: 20200831
  144. OXYGEN. [Concomitant]
     Active Substance: OXYGEN
     Dosage: TRANSTRACHEAL
     Dates: start: 20200914
  145. OXYGEN. [Concomitant]
     Active Substance: OXYGEN
     Route: 007
     Dates: start: 20200726
  146. OXYGEN. [Concomitant]
     Active Substance: OXYGEN
     Dosage: TRANSTRACHEAL
     Dates: start: 20200902
  147. OXYGEN. [Concomitant]
     Active Substance: OXYGEN
     Dosage: TRANSTRACHEAL
     Dates: start: 20200825

REACTIONS (5)
  - Sepsis [Recovered/Resolved]
  - Respiratory failure [Not Recovered/Not Resolved]
  - Post procedural haemorrhage [Recovered/Resolved]
  - Pneumonia klebsiella [Fatal]
  - Atelectasis [Recovered/Resolved]

NARRATIVE: CASE EVENT DATE: 20200808
